FAERS Safety Report 4586006-0 (Version None)
Quarter: 2005Q1

REPORT INFORMATION
  Report Type: 
  Country: None (occurrence: None)
  Receive Date: 20050125
  Receipt Date: 20040928
  Transmission Date: 20050727
  Serious: No
  Sender: FDA-Public Use
  Company Number: USA040669425

PATIENT
  Age: 74 Year
  Sex: Female
  Weight: 58 kg

DRUGS (10)
  1. FORTEO [Suspect]
     Indication: OSTEOPOROSIS
     Dosage: 20 UG EVERY OTHER DAY
     Dates: start: 20040528, end: 20040729
  2. VITAMIN B12 FOR INJECTION (CYANACOBALAMIN) [Concomitant]
  3. PROTONIX [Concomitant]
  4. LORAZEPAM [Concomitant]
  5. CALTRATE (CALCIUM CARBONATE) [Concomitant]
  6. MULTI-VITAMIN [Concomitant]
  7. HYDROCHLOROTHIAZIDE [Concomitant]
  8. ALDACTAZIDE [Concomitant]
  9. FOSAMAX [Concomitant]
  10. ACTONEL [Concomitant]

REACTIONS (26)
  - ABNORMAL SENSATION IN EYE [None]
  - ARTHRALGIA [None]
  - ASTHENIA [None]
  - BACK PAIN [None]
  - BLOOD PRESSURE DECREASED [None]
  - BONE PAIN [None]
  - COUGH [None]
  - DEPRESSION [None]
  - DYSURIA [None]
  - EYE PAIN [None]
  - EYE SWELLING [None]
  - FEELING ABNORMAL [None]
  - FLUID RETENTION [None]
  - HEADACHE [None]
  - INJECTION SITE HAEMORRHAGE [None]
  - INJECTION SITE PAIN [None]
  - MUSCLE SPASMS [None]
  - NECK PAIN [None]
  - NERVOUSNESS [None]
  - OEDEMA [None]
  - OEDEMA PERIPHERAL [None]
  - PAIN [None]
  - PAIN IN EXTREMITY [None]
  - PYREXIA [None]
  - SWELLING [None]
  - SWELLING FACE [None]
